FAERS Safety Report 6127592-9 (Version None)
Quarter: 2009Q1

REPORT INFORMATION
  Report Type: 
  Country: None (occurrence: None)
  Receive Date: 20090323
  Receipt Date: 20090312
  Transmission Date: 20090719
  Serious: Yes (Hospitalization)
  Sender: FDA-Public Use
  Company Number: US-BIOGENIDEC-2009BI007746

PATIENT
  Age: 53 Year
  Sex: Female

DRUGS (1)
  1. TYSABRI [Suspect]
     Indication: MULTIPLE SCLEROSIS
     Route: 042
     Dates: start: 20070227

REACTIONS (6)
  - CARDIAC DISORDER [None]
  - CARDIAC ENZYMES INCREASED [None]
  - HYPERTENSION [None]
  - HYPOTENSION [None]
  - OESOPHAGEAL SPASM [None]
  - ROTATOR CUFF SYNDROME [None]
